FAERS Safety Report 4699564-2 (Version None)
Quarter: 2005Q2

REPORT INFORMATION
  Report Type: 
  Country: None (occurrence: None)
  Receive Date: 20050622
  Receipt Date: 20050613
  Transmission Date: 20051028
  Serious: Yes (Hospitalization)
  Sender: FDA-Public Use
  Company Number: HQWYE383013JUN05

PATIENT
  Age: 80 Year
  Sex: Female

DRUGS (6)
  1. CORDARONE [Suspect]
     Indication: ATRIAL FIBRILLATION
     Dosage: 200 MG 5X PER 1 WK, ORAL
     Route: 048
     Dates: start: 20050117, end: 20050306
  2. DICLOFENAC SODIUM [Suspect]
     Indication: ATRIAL FLUTTER
     Dosage: 1 PERCENT, TOPICAL
     Route: 061
     Dates: start: 20050117, end: 20050306
  3. SINTROM [Suspect]
     Indication: PROPHYLAXIS
     Dosage: 1 MG 1X PER 1 DAY, ORAL
     Route: 048
     Dates: start: 20050117, end: 20050306
  4. CORVASAL (MOLSIDOMINE) [Concomitant]
  5. LORAZEPAM [Concomitant]
  6. APROVEL (IRBESARTAN) [Concomitant]

REACTIONS (5)
  - DRUG INTERACTION [None]
  - HAEMATOCRIT DECREASED [None]
  - HAEMOGLOBIN DECREASED [None]
  - INTERNATIONAL NORMALISED RATIO INCREASED [None]
  - VARICOSE VEIN RUPTURED [None]
